FAERS Safety Report 24640207 (Version 3)
Quarter: 2025Q3

REPORT INFORMATION
  Report Type: Spontaneous
  Country: US (occurrence: US)
  Receive Date: 20241120
  Receipt Date: 20250916
  Transmission Date: 20251020
  Serious: Yes (Other)
  Sender: BRISTOL-MYERS SQUIBB COMPANY
  Company Number: US-BRISTOL-MYERS SQUIBB COMPANY-2024-177612

PATIENT
  Age: 59 Year
  Sex: Male

DRUGS (4)
  1. POMALYST [Suspect]
     Active Substance: POMALIDOMIDE
     Indication: Plasma cell myeloma
  2. POMALYST [Suspect]
     Active Substance: POMALIDOMIDE
     Indication: Bone cancer
     Dosage: 1 CAPSULE BY MOUTH 1 TIME A DAY FOR 21 DAYS ON THEN 7 DAYS
  3. POMALYST [Suspect]
     Active Substance: POMALIDOMIDE
  4. POMALYST [Suspect]
     Active Substance: POMALIDOMIDE

REACTIONS (1)
  - Neuropathy peripheral [Not Recovered/Not Resolved]
